FAERS Safety Report 7759299-6 (Version None)
Quarter: 2011Q3

REPORT INFORMATION
  Report Type: 
  Country: None (occurrence: None)
  Receive Date: 20110919
  Receipt Date: 20110909
  Transmission Date: 20111222
  Serious: Yes (Death)
  Sender: FDA-Public Use
  Company Number: NL-BAXTER-2011BH025219

PATIENT
  Age: 78 Year
  Sex: Female

DRUGS (2)
  1. FEIBA [Suspect]
     Indication: HAEMOPHILIA
     Route: 065
     Dates: end: 20110728
  2. NOVOSEVEN [Concomitant]
     Indication: HAEMOPHILIA
     Route: 065

REACTIONS (2)
  - CARDIOPULMONARY FAILURE [None]
  - STAPHYLOCOCCAL SEPSIS [None]
